FAERS Safety Report 7067161 (Version 5)
Quarter: 2014Q2

REPORT INFORMATION
  Report Type: Spontaneous
  Country: JP (occurrence: None)
  Receive Date: 20090715
  Receipt Date: 20140429
  Transmission Date: 20141212
  Serious: Yes (Death, Life-Threatening, Hospitalization)
  Sender: FDA-Public Use
  Company Number: THYM-1001085

PATIENT
  Age: 35 Year
  Sex: Male
  Weight: 59 kg

DRUGS (20)
  1. THYMOGLOBULIN [Suspect]
     Indication: APLASTIC ANAEMIA
     Dosage: 200 MG, QD, INTRAVENOUS
     Route: 042
     Dates: start: 20090625, end: 20090627
  2. METHYLPREDNISOLONE [Concomitant]
  3. CICLOSPORIN (CICLOSPORIN) [Concomitant]
  4. FILGRASTIM (FILGRASTIM) [Concomitant]
  5. CEFEPIME HYDROCHLORIDE (CEFEPIME HYDROCHLORIDE) [Concomitant]
  6. MEROPENEM [Concomitant]
  7. DOBUTAMINE HYDROCHLORIDE [Concomitant]
  8. PREDNISOLONE SODIUM SUCCINATE [Concomitant]
  9. MICAFUNGIN SODIUM (MICAFUNGIN SODIUM) [Concomitant]
  10. LANSOPRAZOLE (LANSOPRAZOLE) [Concomitant]
  11. SODIUM GUALENATE (SODIUM GUALENATE) [Concomitant]
  12. URSODIOL [Concomitant]
  13. SENNOSIDE A+B CALCIUM [Concomitant]
  14. ATROPINE SULFATE [Concomitant]
  15. CLOSTRIDIUM BUTYRICUM [Concomitant]
  16. PARACETAMOL [Concomitant]
  17. PURSENNID [Concomitant]
  18. FLUCONAZOLE [Concomitant]
  19. LIDOCAINE [Concomitant]
  20. EPINEPHRINE [Concomitant]

REACTIONS (18)
  - Gastrointestinal haemorrhage [None]
  - Cardiomyopathy [None]
  - Intra-abdominal haemorrhage [None]
  - Sepsis [None]
  - Gastrointestinal necrosis [None]
  - Chills [None]
  - Pyrexia [None]
  - Nausea [None]
  - Renal failure acute [None]
  - Blood potassium increased [None]
  - Neutropenia [None]
  - Diarrhoea [None]
  - Hypovolaemic shock [None]
  - Cardiotoxicity [None]
  - Cardiac arrest [None]
  - Toxicity to various agents [None]
  - Shock haemorrhagic [None]
  - Electrocardiogram QRS complex prolonged [None]
